FAERS Safety Report 4384009-2 (Version None)
Quarter: 2004Q2

REPORT INFORMATION
  Report Type: 
  Country: None (occurrence: None)
  Receive Date: 20040621
  Receipt Date: 20040608
  Transmission Date: 20050107
  Serious: Yes (Disabling, Other)
  Sender: FDA-Public Use
  Company Number: 2004038287

PATIENT
  Age: 46 Year
  Sex: Male
  Weight: 122.4712 kg

DRUGS (5)
  1. NEURONTIN [Suspect]
     Indication: NEUROPATHY
     Dosage: 900 MG (300 MG, 3 IN 1 D), ORAL
     Route: 048
     Dates: start: 19990101
  2. METFORMIN HCL [Concomitant]
  3. GLIPIZIDE [Concomitant]
  4. ROSIGLITAZONE MALEATE [Concomitant]
  5. GEMFIBROZIL (GERMFIBROZIL) [Concomitant]

REACTIONS (4)
  - BACK PAIN [None]
  - CONDITION AGGRAVATED [None]
  - DRUG INEFFECTIVE [None]
  - INTERVERTEBRAL DISC DEGENERATION [None]
